FAERS Safety Report 8824090 (Version 1)
Quarter: 2012Q4

REPORT INFORMATION
  Report Type: 
  Country: HU (occurrence: HU)
  Receive Date: 20121003
  Receipt Date: 20121003
  Transmission Date: 20130627
  Serious: Yes (Other)
  Sender: FDA-Public Use
  Company Number: HU-PFIZER INC-2012241198

PATIENT
  Age: 77 Year
  Sex: Female
  Weight: 90 kg

DRUGS (6)
  1. XALATAN [Suspect]
     Indication: GLAUCOMA
     Dosage: 1x1 drop/day
     Dates: start: 201109
  2. MEFORAL [Concomitant]
     Dosage: UNK
     Dates: start: 201209
  3. APO-FAMOTIDINE [Concomitant]
     Dosage: stared several years ago
  4. DIALOSA [Concomitant]
     Dosage: stared several years ago
  5. AMILORID [Concomitant]
     Dosage: started several years ago
  6. MINIPRESS [Concomitant]
     Dosage: started several years ago

REACTIONS (3)
  - Drug ineffective [Not Recovered/Not Resolved]
  - Visual impairment [Not Recovered/Not Resolved]
  - Colour blindness acquired [Not Recovered/Not Resolved]
